FAERS Safety Report 9544110 (Version 2)
Quarter: 2013Q3

REPORT INFORMATION
  Report Type: Spontaneous
  Country: DZ (occurrence: DZ)
  Receive Date: 20130923
  Receipt Date: 20130923
  Transmission Date: 20140515
  Serious: Yes (Other)
  Sender: FDA-Public Use
  Company Number: DZ-ROCHE-1265516

PATIENT
  Age: 56 Year
  Sex: Male

DRUGS (3)
  1. ACTEMRA [Suspect]
     Indication: RHEUMATOID ARTHRITIS
     Route: 042
     Dates: start: 201211
  2. METHOTREXATE [Suspect]
     Indication: RHEUMATOID ARTHRITIS
     Dosage: QD
     Route: 048
     Dates: start: 2012
  3. PRECORTISYL [Suspect]
     Indication: RHEUMATOID ARTHRITIS
     Route: 048

REACTIONS (3)
  - Paraneoplastic syndrome [Unknown]
  - C-reactive protein increased [Recovering/Resolving]
  - Blood triglycerides increased [Unknown]
